FAERS Safety Report 24377971 (Version 1)
Quarter: 2024Q3

REPORT INFORMATION
  Report Type: Report from Study
  Country: US (occurrence: US)
  Receive Date: 20240930
  Receipt Date: 20240930
  Transmission Date: 20241016
  Serious: Yes (Other)
  Sender: UCB
  Company Number: US-UCBSA-2024048590

PATIENT
  Sex: Female

DRUGS (1)
  1. FINTEPLA [Suspect]
     Active Substance: FENFLURAMINE
     Indication: Idiopathic generalised epilepsy
     Dosage: 4 MILLILITER, 2X/DAY (BID)
     Dates: start: 20240308, end: 20240917

REACTIONS (2)
  - Seizure [Unknown]
  - Chest pain [Unknown]

NARRATIVE: CASE EVENT DATE: 20240101
